FAERS Safety Report 9678836 (Version 1)
Quarter: 2013Q4

REPORT INFORMATION
  Report Type: Spontaneous
  Country: ZA (occurrence: ZA)
  Receive Date: 20131108
  Receipt Date: 20131108
  Transmission Date: 20140711
  Serious: Yes (Other)
  Sender: FDA-Public Use
  Company Number: ZA-GLAXOSMITHKLINE-B0940660A

PATIENT
  Sex: Male

DRUGS (1)
  1. MALANIL [Suspect]
     Indication: PROPHYLAXIS
     Route: 065

REACTIONS (2)
  - Malaria [Unknown]
  - Drug resistance [Unknown]
